FAERS Safety Report 7994575-3 (Version None)
Quarter: 2011Q4

REPORT INFORMATION
  Report Type: 
  Country: None (occurrence: None)
  Receive Date: 20111220
  Receipt Date: 20111215
  Transmission Date: 20120403
  Serious: Yes (Other)
  Sender: FDA-Public Use
  Company Number: NL-PFIZER INC-2011306011

PATIENT
  Age: 48 Year
  Sex: Female
  Weight: 67 kg

DRUGS (1)
  1. LYRICA [Suspect]
     Indication: NEURALGIA
     Dosage: 75 MG, 1X/DAY
     Dates: start: 20111202, end: 20111209

REACTIONS (9)
  - BALANCE DISORDER [None]
  - FEELING COLD [None]
  - MUSCULAR WEAKNESS [None]
  - HYPOAESTHESIA ORAL [None]
  - PALPITATIONS [None]
  - VISUAL ACUITY REDUCED [None]
  - FEELING ABNORMAL [None]
  - SOMNOLENCE [None]
  - DISTURBANCE IN ATTENTION [None]
